FAERS Safety Report 19072648 (Version 1)
Quarter: 2021Q1

REPORT INFORMATION
  Report Type: Spontaneous
  Country: US (occurrence: US)
  Receive Date: 20210330
  Receipt Date: 20210330
  Transmission Date: 20210420
  Serious: No
  Sender: FDA-Public Use
  Company Number: None

PATIENT
  Age: 55 Year
  Sex: Female
  Weight: 119.25 kg

DRUGS (17)
  1. ALIVE GUMMY VITAMINS [Concomitant]
  2. CHLOR?TRIMETON [Concomitant]
     Active Substance: CHLORPHENIRAMINE MALEATE
  3. METFORMIN ER [Concomitant]
     Active Substance: METFORMIN HYDROCHLORIDE
  4. DICLOFENAC EPOLAMINE TOPICAL PATCH 1.3% [Suspect]
     Active Substance: DICLOFENAC EPOLAMINE
     Indication: INFLAMMATION
     Dosage: ?          QUANTITY:2 PATCH(ES);?
     Route: 062
     Dates: start: 20170110, end: 20210329
  5. PANTOPRAZOLE [Concomitant]
     Active Substance: PANTOPRAZOLE
  6. NORTRIPTYLINE [Concomitant]
     Active Substance: NORTRIPTYLINE
  7. COMPAZINE [Concomitant]
     Active Substance: PROCHLORPERAZINE MALEATE
  8. PIMECROLIMUS 1% CREAM [Concomitant]
  9. MICARDIS [Concomitant]
     Active Substance: TELMISARTAN
  10. NAPROXEN. [Concomitant]
     Active Substance: NAPROXEN
  11. CRESTOR [Concomitant]
     Active Substance: ROSUVASTATIN CALCIUM
  12. FERROUS FUMARATE [Concomitant]
     Active Substance: FERROUS FUMARATE
  13. VIACTIV [Concomitant]
  14. NOVOLOG [Concomitant]
     Active Substance: INSULIN ASPART
  15. METAMUCIL [Concomitant]
     Active Substance: PLANTAGO SEED
  16. VITAMIN D [Concomitant]
     Active Substance: VITAMIN D NOS
  17. FLECTOR [Concomitant]
     Active Substance: DICLOFENAC EPOLAMINE

REACTIONS (1)
  - Skin injury [None]

NARRATIVE: CASE EVENT DATE: 20210329
